FAERS Safety Report 5427658-2 (Version None)
Quarter: 2007Q3

REPORT INFORMATION
  Report Type: 
  Country: None (occurrence: None)
  Receive Date: 20070823
  Receipt Date: 20070807
  Transmission Date: 20080115
  Serious: Yes (Life-Threatening, Hospitalization)
  Sender: FDA-Public Use
  Company Number: DSA_30117_2007

PATIENT
  Age: 25 Year
  Sex: Female

DRUGS (6)
  1. LORAZEPAM [Suspect]
     Dosage: 75 MG 1X NOT PRESCRIBED AMOUNT ORAL
     Route: 048
     Dates: start: 20070613, end: 20070613
  2. ACETYLSALICYLIC ACID SRT [Suspect]
     Dosage: 10000 MG 1X NOT PRESCRIBED AMOUNT ORAL
     Route: 048
     Dates: start: 20070613, end: 20070613
  3. CARBAMAZEPINE [Suspect]
     Dosage: 2000 MG 1X NOT PRESCRIBED AMOUNT ORAL
     Route: 048
     Dates: start: 20070613, end: 20070613
  4. CARBAMAZEPINE [Suspect]
     Dosage: 16000 MG 1X NOT PRESCRIBED AMOUNT ORAL
     Route: 048
     Dates: start: 20070613, end: 20070613
  5. ZYPREXA [Suspect]
     Dosage: 210 MG 1X NOT PRESCRIBED AMOUNT ORAL
     Route: 048
     Dates: start: 20070613, end: 20070613
  6. ETHANOL (BEER) [Suspect]
     Dosage: ORAL
     Route: 048
     Dates: start: 20070613, end: 20070613

REACTIONS (8)
  - ALCOHOL USE [None]
  - HYPOGLYCAEMIA [None]
  - HYPOKALAEMIA [None]
  - HYPOTENSION [None]
  - MULTIPLE DRUG OVERDOSE INTENTIONAL [None]
  - SOMNOLENCE [None]
  - SUICIDE ATTEMPT [None]
  - TACHYCARDIA [None]
